FAERS Safety Report 14730132 (Version 2)
Quarter: 2018Q2

REPORT INFORMATION
  Report Type: Spontaneous
  Country: FR (occurrence: FR)
  Receive Date: 20180406
  Receipt Date: 20180427
  Transmission Date: 20180711
  Serious: Yes (Death)
  Sender: FDA-Public Use
  Company Number: FR-MALLINCKRODT-T201801401

PATIENT
  Age: 35 Year

DRUGS (3)
  1. IMATINIB [Suspect]
     Active Substance: IMATINIB
     Indication: CHRONIC GRAFT VERSUS HOST DISEASE
     Dosage: UNKNOWN
     Route: 065
  2. UVADEX [Suspect]
     Active Substance: METHOXSALEN
     Indication: CHRONIC GRAFT VERSUS HOST DISEASE
     Dosage: UNKNOWN  (5 PRIOR ECP)
     Route: 057
  3. UVADEX [Suspect]
     Active Substance: METHOXSALEN
     Dosage: UNKNOWN
     Route: 057

REACTIONS (2)
  - Myocardial infarction [Fatal]
  - Product use in unapproved indication [Unknown]
